APPROVED DRUG PRODUCT: HALOPERIDOL INTENSOL
Active Ingredient: HALOPERIDOL LACTATE
Strength: EQ 2MG BASE/ML
Dosage Form/Route: CONCENTRATE;ORAL
Application: A072045 | Product #001
Applicant: HIKMA PHARMACEUTICALS USA INC
Approved: Apr 12, 1988 | RLD: No | RS: No | Type: DISCN